FAERS Safety Report 10548313 (Version 3)
Quarter: 2014Q4

REPORT INFORMATION
  Report Type: Spontaneous
  Country: JP (occurrence: JP)
  Receive Date: 20141028
  Receipt Date: 20141117
  Transmission Date: 20150529
  Serious: No
  Sender: FDA-Public Use
  Company Number: JP-GLAXOSMITHKLINE-JP2014JPN001749

PATIENT

DRUGS (4)
  1. STOCRIN [Concomitant]
     Active Substance: EFAVIRENZ
     Indication: HIV INFECTION
     Dosage: UNK
     Dates: start: 20120604
  2. TIVICAY [Suspect]
     Active Substance: DOLUTEGRAVIR SODIUM
     Indication: HIV INFECTION
     Dosage: 50 MG, QD
     Route: 048
     Dates: start: 20140610
  3. ZOPICLONE [Concomitant]
     Active Substance: ZOPICLONE
     Indication: INITIAL INSOMNIA
     Dosage: 7.5 MG, QD
     Dates: start: 20140701
  4. EPZICOM [Suspect]
     Active Substance: ABACAVIR SULFATE\LAMIVUDINE
     Indication: HIV INFECTION
     Dosage: 1 DF, QD
     Dates: start: 20120604

REACTIONS (6)
  - Macule [Recovering/Resolving]
  - Pain of skin [Unknown]
  - Pruritus [Unknown]
  - Scar [None]
  - Eczema [Recovering/Resolving]
  - Pigmentation disorder [Unknown]

NARRATIVE: CASE EVENT DATE: 201406
